FAERS Safety Report 6875492-9 (Version None)
Quarter: 2010Q3

REPORT INFORMATION
  Report Type: 
  Country: None (occurrence: None)
  Receive Date: 20100727
  Receipt Date: 20100716
  Transmission Date: 20110219
  Serious: Yes (Other)
  Sender: FDA-Public Use
  Company Number: DE-JNJFOC-20100510270

PATIENT
  Sex: Male

DRUGS (1)
  1. ITRACOL HEXAL [Suspect]
     Indication: PRODUCT USED FOR UNKNOWN INDICATION
     Dosage: TREATED FOR 1 WEEK
     Route: 065
     Dates: start: 20100501, end: 20100524

REACTIONS (4)
  - CARDIAC DISORDER [None]
  - DYSPNOEA [None]
  - FATIGUE [None]
  - SLEEP DISORDER [None]
